FAERS Safety Report 17247415 (Version 2)
Quarter: 2020Q1

REPORT INFORMATION
  Report Type: Spontaneous
  Country: AU (occurrence: AU)
  Receive Date: 20200108
  Receipt Date: 20200318
  Transmission Date: 20200409
  Serious: Yes (Hospitalization, Other)
  Sender: FDA-Public Use
  Company Number: AU-MYLANLABS-2020M1001976

PATIENT
  Sex: Female

DRUGS (19)
  1. CLOZARIL [Suspect]
     Active Substance: CLOZAPINE
     Indication: SCHIZOPHRENIA
     Dosage: 175 MILLIGRAM
     Route: 048
     Dates: start: 20191115
  2. QUETIAPINE. [Concomitant]
     Active Substance: QUETIAPINE
     Dosage: DOSES 1200,1500
  3. QUETIAPINE. [Concomitant]
     Active Substance: QUETIAPINE
     Dosage: 0600 UNK
  4. DESVENLAFAXINE. [Concomitant]
     Active Substance: DESVENLAFAXINE
     Dosage: DOSES 0600,1500
  5. CALCIUM CARBONATE. [Concomitant]
     Active Substance: CALCIUM CARBONATE
     Dosage: 1 TABLET ORAL, EVERY MORNING WITH FOOD
     Route: 048
     Dates: start: 20191203
  6. MAGNESIUM ASPARTAT [Concomitant]
     Dosage: 1 TAB EVERY NIGHT
     Route: 048
     Dates: start: 20191203
  7. ASPIRIN                            /00002701/ [Concomitant]
     Active Substance: ASPIRIN
     Dosage: WITH FOOD
     Route: 048
     Dates: start: 20191203
  8. PANTOPRAZOLE [Concomitant]
     Active Substance: PANTOPRAZOLE
     Dosage: 40 MILLIGRAM, AM
     Route: 048
     Dates: start: 20191203
  9. TARGIN [Concomitant]
     Active Substance: NALOXONE HYDROCHLORIDE\OXYCODONE HYDROCHLORIDE
     Indication: PAIN
     Dosage: 20/10 MG BD/ 1 TABLET TWICE A DAY
     Route: 048
     Dates: start: 20191203
  10. ACAMPROSATE CALCIUM. [Concomitant]
     Active Substance: ACAMPROSATE CALCIUM
     Dosage: WITH FOOD
     Route: 048
     Dates: start: 20191203
  11. ZIPRASIDONE. [Concomitant]
     Active Substance: ZIPRASIDONE
     Dosage: DOSES 0600,1200,1500,1800
  12. QUETIAPINE. [Concomitant]
     Active Substance: QUETIAPINE
     Dosage: 300 MILLIGRAM, PM
  13. CLOZARIL [Suspect]
     Active Substance: CLOZAPINE
     Dosage: 175 MILLIGRAM, PM
     Route: 048
     Dates: start: 20191203
  14. MIRTAZAPINE. [Concomitant]
     Active Substance: MIRTAZAPINE
     Dosage: DOSE 2000
  15. IVABRADINE [Concomitant]
     Active Substance: IVABRADINE
     Dosage: 5 MILLIGRAM, BID WITH FOOD
     Route: 048
     Dates: start: 20191203
  16. DIAZEPAM. [Concomitant]
     Active Substance: DIAZEPAM
     Dosage: DOSE 2000
  17. CLOZARIL [Suspect]
     Active Substance: CLOZAPINE
     Dosage: 200 MILLIGRAM, PM
  18. MIRTAZAPINE. [Concomitant]
     Active Substance: MIRTAZAPINE
     Dosage: DOSES 0600,1200,1500
  19. THIAMINE. [Concomitant]
     Active Substance: THIAMINE
     Dosage: 100 MILLIGRAM, TID
     Route: 048
     Dates: start: 20191203

REACTIONS (2)
  - Ideas of reference [Unknown]
  - Delusion [Unknown]
